FAERS Safety Report 4535097-1 (Version None)
Quarter: 2004Q4

REPORT INFORMATION
  Report Type: 
  Country: None (occurrence: None)
  Receive Date: 20041214
  Receipt Date: 20040827
  Transmission Date: 20050328
  Serious: No
  Sender: FDA-Public Use
  Company Number: 2004227896US

PATIENT
  Age: 78 Year
  Sex: Female
  Weight: 57.1 kg

DRUGS (6)
  1. BEXTRA [Suspect]
     Indication: KNEE OPERATION
     Dosage: 10 MG
  2. ULTRACET [Suspect]
  3. FOSAMAX [Concomitant]
  4. LIPITOR [Concomitant]
  5. CARDIZEM [Concomitant]
  6. MULTIVITAMIN [Concomitant]

REACTIONS (6)
  - DRUG INEFFECTIVE [None]
  - DRUG INTERACTION [None]
  - FATIGUE [None]
  - HYPERTENSION [None]
  - PAIN [None]
  - WEIGHT DECREASED [None]
